FAERS Safety Report 5739953-8 (Version None)
Quarter: 2008Q2

REPORT INFORMATION
  Report Type: 
  Country: None (occurrence: None)
  Receive Date: 20080513
  Receipt Date: 20080513
  Transmission Date: 20081010
  Serious: Yes (Hospitalization)
  Sender: FDA-Public Use
  Company Number: None

PATIENT
  Age: 70 Year
  Sex: Male

DRUGS (2)
  1. HYDROCHLOROTHIAZIDE [Suspect]
     Indication: HYPERTENSION
     Dosage: 25 MG EVERY DAY PO
     Route: 048
     Dates: start: 20060706, end: 20080430
  2. TERAZOSIN HCL [Suspect]
     Indication: BENIGN PROSTATIC HYPERPLASIA
     Dosage: 10 MG EVERY DAY PO
     Route: 048
     Dates: start: 20000405, end: 20080501

REACTIONS (3)
  - DIZZINESS POSTURAL [None]
  - HYPOTENSION [None]
  - NAUSEA [None]
